FAERS Safety Report 18260574 (Version 2)
Quarter: 2020Q4

REPORT INFORMATION
  Report Type: Spontaneous
  Country: NL (occurrence: NL)
  Receive Date: 20200914
  Receipt Date: 20201006
  Transmission Date: 20210113
  Serious: Yes (Life-Threatening, Hospitalization, Other)
  Sender: FDA-Public Use
  Company Number: NL-AUROBINDO-AUR-APL-2020-047266

PATIENT
  Age: 80 Year
  Sex: Female
  Weight: 61 kg

DRUGS (3)
  1. PANTOPRAZOLE GASTRO-RESISTANT TABLET 40 MG [Suspect]
     Active Substance: PANTOPRAZOLE
     Indication: PROPHYLAXIS AGAINST GASTROINTESTINAL ULCER
     Dosage: 40 MILLIGRAM, ONCE A DAY (1X PER DAY 1 PIECE)
     Route: 065
     Dates: start: 20190620, end: 20200810
  2. CARBASALAATCALCIUM [Concomitant]
     Active Substance: CARBASPIRIN CALCIUM
     Indication: PRODUCT USED FOR UNKNOWN INDICATION
     Dosage: UNK (SACHET (POWDER), 100 MG (MILLIGRAM))
     Route: 065
  3. COLECALCIFEROL [Concomitant]
     Active Substance: CHOLECALCIFEROL
     Indication: PRODUCT USED FOR UNKNOWN INDICATION
     Dosage: UNK (CAPSULE, 5600 UNITS)
     Route: 065

REACTIONS (3)
  - Tubulointerstitial nephritis [Recovering/Resolving]
  - Visual impairment [Not Recovered/Not Resolved]
  - Acute kidney injury [Recovering/Resolving]

NARRATIVE: CASE EVENT DATE: 20200810
